FAERS Safety Report 24366083 (Version 1)
Quarter: 2024Q3

REPORT INFORMATION
  Report Type: Spontaneous
  Country: US (occurrence: None)
  Receive Date: 20240925
  Receipt Date: 20240925
  Transmission Date: 20241017
  Serious: Yes (Other)
  Sender: Public
  Company Number: None

PATIENT
  Sex: Male

DRUGS (5)
  1. LORBRENA [Suspect]
     Active Substance: LORLATINIB
     Indication: Adrenal gland cancer
     Route: 048
     Dates: start: 20231013
  2. LOPERAMIDE [Concomitant]
     Active Substance: LOPERAMIDE
  3. LORBRENA [Concomitant]
     Active Substance: LORLATINIB
  4. MARINOL [Concomitant]
     Active Substance: DRONABINOL
  5. TAFINLAR [Concomitant]

REACTIONS (2)
  - Adrenal gland cancer [None]
  - Disease recurrence [None]
